FAERS Safety Report 9691234 (Version 1)
Quarter: 2013Q4

REPORT INFORMATION
  Report Type: Spontaneous
  Country: US (occurrence: US)
  Receive Date: 20131115
  Receipt Date: 20131115
  Transmission Date: 20140711
  Serious: No
  Sender: FDA-Public Use
  Company Number: US-BAUSCH-BL-2012-001962

PATIENT
  Age: 65 Year
  Sex: Male

DRUGS (6)
  1. TOBRAMYCIN AND DEXAMETHASONE OPHTHALMIC SUSPENSION USP 0.3%/0.1% [Suspect]
     Indication: EYE INFECTION
     Dosage: 1 DROP; FOUR TIMES A DAY; OPHTHALMIC
     Route: 047
     Dates: start: 201211
  2. ATORVASTATIN CALCIUM [Concomitant]
     Indication: BLOOD CHOLESTEROL INCREASED
     Dosage: 40 MG; DAILY; ORAL
     Route: 048
     Dates: start: 2002
  3. QUINAPRIL [Concomitant]
     Indication: HYPERTENSION
     Dosage: 20 MG; DAILY; ORAL
     Route: 048
     Dates: start: 2002
  4. SILODOSIN [Concomitant]
     Indication: PROSTATOMEGALY
     Dosage: DAILY;ORAL
     Route: 048
     Dates: start: 2012
  5. FINASTERIDE [Concomitant]
     Indication: PROSTATOMEGALY
     Dosage: DAILY;ORAL
     Route: 048
     Dates: start: 2012
  6. ACETYLSALICYLIC ACID [Concomitant]
     Dosage: 81 MG; DAILY; ORAL
     Route: 048
     Dates: start: 2007

REACTIONS (1)
  - Heart rate irregular [Not Recovered/Not Resolved]
